FAERS Safety Report 5477753-7 (Version None)
Quarter: 2007Q4

REPORT INFORMATION
  Report Type: 
  Country: None (occurrence: None)
  Receive Date: 20071002
  Receipt Date: 20071002
  Transmission Date: 20080405
  Serious: Yes (Hospitalization, Disabling, Other)
  Sender: FDA-Public Use
  Company Number: None

PATIENT
  Age: 68 Year
  Sex: Female
  Weight: 69.8539 kg

DRUGS (12)
  1. ACETAMINOPHEN AND OXYCODONE HCL [Suspect]
     Dosage: 1 TAB Q4H PRN PO
     Route: 048
  2. ACETAMINOPHEN [Concomitant]
  3. FEOSOL [Concomitant]
  4. SENNA [Concomitant]
  5. PRILOSEC [Concomitant]
  6. LASIX [Concomitant]
  7. K-DUR 10 [Concomitant]
  8. MULTI-VIT [Concomitant]
  9. CARDURA [Concomitant]
  10. CALAN [Concomitant]
  11. DIOVAN HCT [Concomitant]
  12. CELEBREX [Concomitant]

REACTIONS (3)
  - FAECALOMA [None]
  - LARGE INTESTINE PERFORATION [None]
  - PERITONITIS [None]
